FAERS Safety Report 4353391-4 (Version None)
Quarter: 2004Q2

REPORT INFORMATION
  Report Type: 
  Country: None (occurrence: None)
  Receive Date: 20040420
  Receipt Date: 20040419
  Transmission Date: 20050107
  Serious: Yes (Hospitalization, Disabling)
  Sender: FDA-Public Use
  Company Number: 04P-163-0251477-00

PATIENT
  Age: 74 Year
  Sex: Male

DRUGS (9)
  1. HUMIRA [Suspect]
     Indication: RHEUMATOID ARTHRITIS
     Dosage: 40 MG, 1 IN 2 WK, SUBCUTANEOUS
     Route: 058
     Dates: start: 20030501, end: 20031201
  2. ATORVASTATIN CALCIUM [Concomitant]
  3. HYDROCHLOROTHIAZIDE [Concomitant]
  4. AMLODIPINE BESYLATE [Concomitant]
  5. METHOTREXATE [Concomitant]
  6. LEVOFLOXACIN [Concomitant]
  7. ORPHENADRINE HYDROCHLORIDE FILM TAB [Concomitant]
  8. OXYCODONE [Concomitant]
  9. FOLIC ACID [Concomitant]

REACTIONS (3)
  - EXTRADURAL ABSCESS [None]
  - NECK PAIN [None]
  - QUADRIPLEGIA [None]
